FAERS Safety Report 5533143-X (Version None)
Quarter: 2007Q4

REPORT INFORMATION
  Report Type: 
  Country: None (occurrence: None)
  Receive Date: 20071204
  Receipt Date: 20071129
  Transmission Date: 20080405
  Serious: Yes (Hospitalization)
  Sender: FDA-Public Use
  Company Number: FR-AVENTIS-200713513FR

PATIENT
  Age: 75 Year
  Sex: Male

DRUGS (7)
  1. FLAGYL [Suspect]
     Route: 048
     Dates: start: 20070423, end: 20070720
  2. OFLOCET                            /00731801/ [Suspect]
     Route: 048
     Dates: start: 20070414, end: 20070809
  3. TAHOR [Concomitant]
     Indication: DRUG USE FOR UNKNOWN INDICATION
  4. NEORAL [Concomitant]
     Indication: DRUG USE FOR UNKNOWN INDICATION
  5. AMLOR [Concomitant]
     Indication: DRUG USE FOR UNKNOWN INDICATION
  6. URBANYL [Concomitant]
     Dates: start: 20070601
  7. ROCEPHIN [Concomitant]
     Dates: start: 20070414, end: 20070625

REACTIONS (1)
  - CEREBELLAR SYNDROME [None]
